APPROVED DRUG PRODUCT: FAMOTIDINE
Active Ingredient: FAMOTIDINE
Strength: 20MG
Dosage Form/Route: TABLET;ORAL
Application: A077367 | Product #001
Applicant: DR REDDYS LABORATORIES LTD
Approved: Sep 25, 2006 | RLD: No | RS: No | Type: OTC